FAERS Safety Report 11833838 (Version 4)
Quarter: 2016Q3

REPORT INFORMATION
  Report Type: Report from Study
  Country: US (occurrence: US)
  Receive Date: 20151214
  Receipt Date: 20160725
  Transmission Date: 20161109
  Serious: Yes (Hospitalization)
  Sender: FDA-Public Use
  Company Number: US-ACTELION-A-NJ2015-128427

PATIENT
  Age: 2 Year
  Sex: Male

DRUGS (2)
  1. REVATIO [Concomitant]
     Active Substance: SILDENAFIL CITRATE
  2. TRACLEER [Suspect]
     Active Substance: BOSENTAN
     Indication: PULMONARY HYPERTENSION
     Dosage: 15.625 MG, BID
     Route: 048
     Dates: start: 20151204

REACTIONS (5)
  - Productive cough [Unknown]
  - Productive cough [Recovered/Resolved]
  - Flushing [Unknown]
  - Respiratory tract infection viral [Recovered/Resolved]
  - Wheezing [Recovered/Resolved]
